FAERS Safety Report 13962014 (Version 2)
Quarter: 2017Q4

REPORT INFORMATION
  Report Type: Report from Study
  Country: US (occurrence: US)
  Receive Date: 20170912
  Receipt Date: 20171010
  Transmission Date: 20180320
  Serious: Yes (Death, Hospitalization)
  Sender: FDA-Public Use
  Company Number: US-ACTELION-A-NJ2017-158720

PATIENT
  Age: 67 Year
  Sex: Female
  Weight: 108.84 kg

DRUGS (3)
  1. LETAIRIS [Concomitant]
     Active Substance: AMBRISENTAN
  2. VELETRI [Suspect]
     Active Substance: EPOPROSTENOL
     Indication: PULMONARY HYPERTENSION
     Dosage: 23.6 NG/KG, PER MIN
     Route: 042
     Dates: start: 201707
  3. ADEMPAS [Concomitant]
     Active Substance: RIOCIGUAT

REACTIONS (3)
  - Pulmonary hypertension [Fatal]
  - Peripheral swelling [Unknown]
  - Flushing [Unknown]

NARRATIVE: CASE EVENT DATE: 20170701
